FAERS Safety Report 17735871 (Version 2)
Quarter: 2020Q2

REPORT INFORMATION
  Report Type: Report from Study
  Country: KR (occurrence: KR)
  Receive Date: 20200501
  Receipt Date: 20200518
  Transmission Date: 20200714
  Serious: Yes (Death)
  Sender: FDA-Public Use
  Company Number: KR-JNJFOC-20200438777

PATIENT
  Age: 85 Year
  Sex: Male
  Weight: 75 kg

DRUGS (19)
  1. MADOPAR [Concomitant]
     Active Substance: BENSERAZIDE HYDROCHLORIDE\LEVODOPA
     Dosage: 125 MG, QD
     Route: 048
     Dates: start: 20170125, end: 20200329
  2. RIVAROXABAN [Suspect]
     Active Substance: RIVAROXABAN
     Indication: EMBOLISM ARTERIAL
     Dosage: 15 MG, QD
     Route: 048
     Dates: start: 20200403, end: 20200406
  3. ESOMEPRAZOLE. [Concomitant]
     Active Substance: ESOMEPRAZOLE MAGNESIUM
     Dosage: 20 MG, QD
     Route: 048
     Dates: start: 20200401, end: 20200403
  4. RIVAROXABAN [Suspect]
     Active Substance: RIVAROXABAN
     Indication: ATRIAL FIBRILLATION
  5. ZOLOFT [Concomitant]
     Active Substance: SERTRALINE HYDROCHLORIDE
     Dosage: 50 MG, QD
     Route: 048
     Dates: start: 20170125, end: 20200329
  6. GASMOTIN [Concomitant]
     Active Substance: MOSAPRIDE CITRATE
     Dosage: 15 MG, QD
     Route: 048
     Dates: start: 20200401, end: 20200403
  7. HEBEN [Concomitant]
     Indication: HYPERTENSION
     Dosage: 15 MG, QD
     Route: 042
     Dates: start: 20200330, end: 20200330
  8. MUCOMYST [Concomitant]
     Active Substance: ACETYLCYSTEINE
     Indication: PRODUCTIVE COUGH
     Dosage: 4 DF, QD
     Route: 055
     Dates: start: 20200331, end: 20200402
  9. DILATREND [Concomitant]
     Active Substance: CARVEDILOL
     Dosage: 1 DF, QD
     Route: 048
     Dates: start: 20170125, end: 20200407
  10. PERINDOPRIL [Concomitant]
     Active Substance: PERINDOPRIL
     Dosage: 4 MG, QD
     Route: 048
     Dates: start: 20170125, end: 20200329
  11. AMODIPIN [Concomitant]
     Dosage: 2.5 MG, QD (HALF OF A 5 MG TABLET)
     Route: 048
     Dates: start: 20170216, end: 20200329
  12. URSA [Concomitant]
     Active Substance: URSODIOL
     Dosage: 600 MG, QD
     Route: 048
     Dates: start: 20200402, end: 20200407
  13. MACPERAN [Concomitant]
     Active Substance: METOCLOPRAMIDE HYDROCHLORIDE
     Indication: PROPHYLAXIS OF NAUSEA AND VOMITING
     Dosage: 3 DF, QD
     Route: 042
     Dates: start: 20200331, end: 20200407
  14. ATROVENT UDV [Concomitant]
     Active Substance: IPRATROPIUM BROMIDE
     Indication: PRODUCTIVE COUGH
     Dosage: 2 DF, QD
     Route: 055
     Dates: start: 20200331, end: 20200407
  15. RIVAROXABAN [Suspect]
     Active Substance: RIVAROXABAN
     Indication: CEREBROVASCULAR ACCIDENT PROPHYLAXIS
     Dosage: 15 MG, QD
     Route: 048
     Dates: start: 20190522, end: 20200329
  16. ESOMEZOLE [Concomitant]
     Dosage: 20 MG, QD
     Route: 048
     Dates: start: 20180125, end: 20200329
  17. ORFIL [Concomitant]
     Active Substance: VALPROATE SODIUM
     Dosage: 300 MG, QD
     Route: 048
     Dates: start: 20170125, end: 20200329
  18. HEBEN [Concomitant]
     Dosage: 10 DF, QD
     Route: 042
     Dates: start: 20200330, end: 20200330
  19. GLIATILIN [Concomitant]
     Active Substance: CHOLINE ALFOSCERATE
     Dosage: 800 MG, QD
     Route: 048
     Dates: start: 20170125, end: 20200329

REACTIONS (1)
  - Hepatotoxicity [Fatal]

NARRATIVE: CASE EVENT DATE: 20200330
